FAERS Safety Report 7609506-5 (Version None)
Quarter: 2011Q3

REPORT INFORMATION
  Report Type: 
  Country: None (occurrence: None)
  Receive Date: 20110706
  Receipt Date: 20110624
  Transmission Date: 20111222
  Serious: Yes (Other)
  Sender: FDA-Public Use
  Company Number: UCM201106-000018

PATIENT
  Age: 43 Year
  Sex: Male

DRUGS (2)
  1. CETIRIZINE HCL [Suspect]
     Indication: RHINITIS ALLERGIC
     Dosage: ORAL
     Route: 048
  2. HYDROXYZINE HCL [Suspect]

REACTIONS (3)
  - DERMATITIS BULLOUS [None]
  - SKIN TEST POSITIVE [None]
  - DRUG ERUPTION [None]
